FAERS Safety Report 6409430-X (Version None)
Quarter: 2009Q4

REPORT INFORMATION
  Report Type: 
  Country: None (occurrence: None)
  Receive Date: 20091019
  Receipt Date: 20091019
  Transmission Date: 20100525
  Serious: Yes (Hospitalization, Other)
  Sender: FDA-Public Use
  Company Number: None

PATIENT
  Age: 23 Year
  Sex: Female
  Weight: 68.0396 kg

DRUGS (1)
  1. FLAGYL [Suspect]
     Indication: VAGINITIS BACTERIAL

REACTIONS (19)
  - ABDOMINAL DISTENSION [None]
  - ANTINUCLEAR ANTIBODY INCREASED [None]
  - BONE PAIN [None]
  - CANDIDIASIS [None]
  - DANDRUFF [None]
  - DENTAL CARIES [None]
  - EPSTEIN-BARR VIRUS TEST POSITIVE [None]
  - EYE DISCHARGE [None]
  - INAPPROPRIATE SCHEDULE OF DRUG ADMINISTRATION [None]
  - INFLUENZA [None]
  - MYALGIA [None]
  - PAIN [None]
  - PRURITUS [None]
  - PYREXIA [None]
  - RETINAL DISORDER [None]
  - TOOTH DISCOLOURATION [None]
  - TOOTH FRACTURE [None]
  - TREATMENT NONCOMPLIANCE [None]
  - WHITE BLOOD CELL COUNT INCREASED [None]
